FAERS Safety Report 7248824-X (Version None)
Quarter: 2011Q1

REPORT INFORMATION
  Report Type: 
  Country: None (occurrence: None)
  Receive Date: 20110128
  Receipt Date: 20110117
  Transmission Date: 20110831
  Serious: Yes (Death, Hospitalization, Other)
  Sender: FDA-Public Use
  Company Number: US-CELGENEUS-163-21880-09072399

PATIENT
  Age: 60 Year
  Sex: Female
  Weight: 94.5 kg

DRUGS (9)
  1. CC-5013 [Suspect]
     Indication: MULTIPLE MYELOMA
     Route: 048
     Dates: start: 20090429, end: 20090720
  2. DEXAMETHASONE [Suspect]
     Route: 065
  3. MELPHALAN [Suspect]
     Indication: MULTIPLE MYELOMA
  4. DOXIL [Suspect]
     Route: 065
  5. AVELOX [Concomitant]
     Route: 065
  6. NEXIUM [Concomitant]
     Route: 065
  7. ETOPOSIDE [Concomitant]
     Indication: LYMPHOHISTIOCYTOSIS
     Route: 065
  8. CC-5013 [Suspect]
     Route: 048
     Dates: start: 20060223
  9. VINCRISTINE [Suspect]
     Route: 065

REACTIONS (7)
  - ENTEROCOCCAL SEPSIS [None]
  - MULTI-ORGAN FAILURE [None]
  - HODGKIN'S DISEASE [None]
  - CARDIO-RESPIRATORY ARREST [None]
  - CHOLESTASIS [None]
  - RENAL FAILURE ACUTE [None]
  - SUBARACHNOID HAEMORRHAGE [None]
